FAERS Safety Report 5173143-5 (Version None)
Quarter: 2007Q1

REPORT INFORMATION
  Report Type: 
  Country: None (occurrence: None)
  Receive Date: 20061207
  Receipt Date: 20061207
  Transmission Date: 20070707
  Serious: Yes (Disabling)
  Sender: FDA-Public Use
  Company Number: None

PATIENT
  Age: 43 Year
  Sex: Male
  Weight: 67 kg

DRUGS (16)
  1. TACROLIMUS [Suspect]
     Indication: IMMUNOSUPPRESSION
     Dosage: 1.5MG  TWICE DAILY   PO
     Route: 048
  2. SIROLIMUS [Suspect]
     Indication: IMMUNOSUPPRESSION
     Dosage: 2 MG  DAILY  PO
     Route: 048
     Dates: start: 20060710, end: 20060724
  3. ZEMAIRA [Concomitant]
  4. REGLAN [Concomitant]
  5. PREDNISONE TAB [Concomitant]
  6. NORVASC [Concomitant]
  7. AVANDIA [Concomitant]
  8. METOPROLOL SUCCINATE [Concomitant]
  9. SIMVASTATIN [Concomitant]
  10. CELEXA [Concomitant]
  11. RIFAXAMIN [Concomitant]
  12. NEXIUM [Concomitant]
  13. LAMICTAL [Concomitant]
  14. FOLIC ACID [Concomitant]
  15. METRONIDAZOLE [Concomitant]
  16. PANTOPRAZOLE SODIUM [Concomitant]

REACTIONS (1)
  - THROMBOTIC THROMBOCYTOPENIC PURPURA [None]
